FAERS Safety Report 5343446-X (Version None)
Quarter: 2007Q2

REPORT INFORMATION
  Report Type: 
  Country: None (occurrence: None)
  Receive Date: 20070531
  Receipt Date: 20061009
  Transmission Date: 20071010
  Serious: Yes (Hospitalization)
  Sender: FDA-Public Use
  Company Number: 2006VX001726

PATIENT
  Sex: Female

DRUGS (1)
  1. FLURAZEPAM HCL [Suspect]
     Dosage: 540 MG

REACTIONS (3)
  - OVERDOSE [None]
  - SOMNOLENCE [None]
  - SUICIDAL IDEATION [None]
